FAERS Safety Report 9624367 (Version 1)
Quarter: 2013Q4

REPORT INFORMATION
  Report Type: Spontaneous
  Country: US (occurrence: US)
  Receive Date: 20131015
  Receipt Date: 20131015
  Transmission Date: 20140711
  Serious: Yes (Other)
  Sender: FDA-Public Use
  Company Number: US-GLAXOSMITHKLINE-A1045473A

PATIENT
  Age: 82 Year
  Sex: Male

DRUGS (1)
  1. ADVAIR DISKUS [Suspect]
     Indication: ASTHMA
     Route: 065
     Dates: start: 19980101

REACTIONS (1)
  - Myocardial infarction [Unknown]
